FAERS Safety Report 12334906 (Version 2)
Quarter: 2016Q3

REPORT INFORMATION
  Report Type: Spontaneous
  Country: US (occurrence: US)
  Receive Date: 20160504
  Receipt Date: 20160712
  Transmission Date: 20161109
  Serious: Yes (Hospitalization, Other)
  Sender: FDA-Public Use
  Company Number: US-BAYER-2016-085862

PATIENT
  Age: 18 Year
  Sex: Female
  Weight: 65.76 kg

DRUGS (2)
  1. MOTRIN [Concomitant]
     Active Substance: IBUPROFEN
  2. MIRENA [Suspect]
     Active Substance: LEVONORGESTREL
     Indication: CONTRACEPTION
     Dosage: 20 MCG/24HR, CONT
     Route: 015
     Dates: start: 20100617, end: 20150103

REACTIONS (9)
  - Device dislocation [None]
  - Pelvic inflammatory disease [None]
  - Headache [None]
  - Device issue [None]
  - Vomiting [None]
  - Uterine perforation [None]
  - Medical device pain [None]
  - Nausea [None]
  - Menorrhagia [None]

NARRATIVE: CASE EVENT DATE: 201006
